FAERS Safety Report 12724980 (Version 3)
Quarter: 2016Q4

REPORT INFORMATION
  Report Type: Spontaneous
  Country: FR (occurrence: FR)
  Receive Date: 20160908
  Receipt Date: 20161021
  Transmission Date: 20170207
  Serious: Yes (Life-Threatening)
  Sender: FDA-Public Use
  Company Number: FR-PFIZER INC-2016416294

PATIENT
  Age: 58 Year
  Sex: Male

DRUGS (8)
  1. PYRIDOXINE [Concomitant]
     Active Substance: PYRIDOXINE
  2. FRESH FROZEN PLASMA [Concomitant]
     Active Substance: HUMAN PLASMA
     Dosage: 2 IU, UNK
     Dates: start: 20160523
  3. ATRACURIUM BESILATE [Suspect]
     Active Substance: ATRACURIUM BESYLATE
     Indication: INDUCTION OF ANAESTHESIA
     Dosage: 10 MG, 1X/DAY
     Route: 042
     Dates: start: 20160523, end: 20160523
  4. TAZOCILLINE [Concomitant]
     Active Substance: PIPERACILLIN SODIUM\TAZOBACTAM SODIUM
  5. HEPARIN SODIUM. [Concomitant]
     Active Substance: HEPARIN SODIUM
  6. EUPANTOL [Concomitant]
     Active Substance: PANTOPRAZOLE SODIUM
  7. PARACETAMOL [Concomitant]
     Active Substance: ACETAMINOPHEN
  8. SUFENTANIL /00723502/ [Suspect]
     Active Substance: SUFENTANIL CITRATE
     Indication: INDUCTION OF ANAESTHESIA
     Dosage: UNK
     Route: 041
     Dates: start: 20160523, end: 20160523

REACTIONS (5)
  - Bronchospasm [Recovered/Resolved]
  - Anaphylactic shock [Recovered/Resolved]
  - Cardiac arrest [Recovered/Resolved]
  - Sinus rhythm [Recovered/Resolved]
  - Bradycardia [Recovered/Resolved]

NARRATIVE: CASE EVENT DATE: 20160523
